FAERS Safety Report 8346236 (Version 2)
Quarter: 2013Q3

REPORT INFORMATION
  Report Type: Spontaneous
  Country: FR (occurrence: FR)
  Receive Date: 20120120
  Receipt Date: 20130805
  Transmission Date: 20140515
  Serious: Yes (Hospitalization, Other)
  Sender: FDA-Public Use
  Company Number: FR-ELI_LILLY_AND_COMPANY-FR201201000675

PATIENT
  Age: 62 Year
  Sex: Male

DRUGS (4)
  1. GEMZAR [Suspect]
     Indication: LEIOMYOSARCOMA
     Dosage: UNK, UNKNOWN
     Route: 042
  2. TAXOTERE [Concomitant]
     Indication: LEIOMYOSARCOMA
     Route: 042
  3. COTAREG [Concomitant]
     Route: 048
  4. NSAID^S [Concomitant]

REACTIONS (11)
  - Aplastic anaemia [Unknown]
  - Renal failure acute [Recovered/Resolved]
  - Generalised oedema [Recovered/Resolved]
  - Acute pulmonary oedema [Unknown]
  - Hypoalbuminaemia [Unknown]
  - Capillary leak syndrome [Unknown]
  - General physical health deterioration [Unknown]
  - Diarrhoea [Unknown]
  - Decreased appetite [Unknown]
  - Oedema peripheral [Unknown]
  - Off label use [Unknown]
